FAERS Safety Report 8873294 (Version 1)
Quarter: 2012Q4

REPORT INFORMATION
  Report Type: Report from Study
  Country: BE (occurrence: BE)
  Receive Date: 20121029
  Receipt Date: 20121029
  Transmission Date: 20130627
  Serious: Yes (Hospitalization)
  Sender: FDA-Public Use
  Company Number: BE-TEVA-364603USA

PATIENT
  Age: 69 Year
  Sex: Male
  Weight: 67 kg

DRUGS (5)
  1. TREANDA [Suspect]
     Indication: NON-HODGKIN^S LYMPHOMA
     Dates: start: 20120516
  2. DAKAR [Concomitant]
     Indication: GASTROOESOPHAGEAL REFLUX DISEASE
     Dosage: 30 Milligram Daily;
     Route: 048
  3. MARCOUMAR [Concomitant]
     Route: 048
  4. LISINOPRIL [Concomitant]
     Indication: HYPERTENSION
     Dosage: 20 Milligram Daily;
     Route: 048
  5. STILNOCT [Concomitant]
     Indication: INSOMNIA
     Dosage: 30 Milligram Daily;
     Route: 048

REACTIONS (1)
  - Polyneuropathy [Not Recovered/Not Resolved]
